FAERS Safety Report 8130472-0 (Version None)
Quarter: 2012Q1

REPORT INFORMATION
  Report Type: 
  Country: None (occurrence: None)
  Receive Date: 20120210
  Receipt Date: 20120203
  Transmission Date: 20120608
  Serious: Yes (Hospitalization, Other)
  Sender: FDA-Public Use
  Company Number: US-MERCK-1108USA01234

PATIENT
  Age: 64 Year
  Sex: Female
  Weight: 73 kg

DRUGS (13)
  1. VITAMINS (UNSPECIFIED) [Concomitant]
     Route: 048
     Dates: start: 19940101
  2. ALENDRONATE SODIUM [Suspect]
     Indication: OSTEOPOROSIS
     Route: 048
     Dates: start: 20080221, end: 20090101
  3. FOSAMAX [Suspect]
     Route: 048
     Dates: start: 20020101, end: 20070101
  4. FOSAMAX [Suspect]
     Route: 048
     Dates: start: 20090101, end: 20090301
  5. CALCIUM (UNSPECIFIED) [Concomitant]
     Route: 065
     Dates: start: 19940101
  6. ESTROGENS, ESTERIFIED AND METHYLTESTOSTERONE [Concomitant]
     Route: 065
     Dates: start: 19961001
  7. VITAMIN D (UNSPECIFIED) [Concomitant]
     Route: 065
     Dates: start: 19940101
  8. FOSAMAX [Suspect]
     Route: 048
     Dates: start: 19960601
  9. ALENDRONATE SODIUM [Suspect]
     Route: 048
     Dates: start: 20090301, end: 20090501
  10. ALENDRONATE SODIUM [Suspect]
     Route: 048
     Dates: start: 20090701, end: 20090101
  11. ALENDRONATE SODIUM [Suspect]
     Route: 048
     Dates: start: 20090601, end: 20090101
  12. FOSAMAX [Suspect]
     Indication: OSTEOPOROSIS
     Route: 048
     Dates: end: 20010101
  13. FOSAMAX [Suspect]
     Route: 048
     Dates: start: 20070905, end: 20080201

REACTIONS (34)
  - FOOT FRACTURE [None]
  - RIB FRACTURE [None]
  - ABDOMINAL INJURY [None]
  - OSTEOPENIA [None]
  - PULMONARY FIBROSIS [None]
  - KYPHOSIS [None]
  - APPENDIX DISORDER [None]
  - INAPPROPRIATE SCHEDULE OF DRUG ADMINISTRATION [None]
  - FALL [None]
  - X-RAY ABNORMAL [None]
  - VITAMIN D DEFICIENCY [None]
  - MUSCULOSKELETAL CHEST PAIN [None]
  - DEFORMITY [None]
  - ANAEMIA POSTOPERATIVE [None]
  - LUNG DISORDER [None]
  - OSTEOARTHRITIS [None]
  - BONE PAIN [None]
  - ATELECTASIS [None]
  - SCAPULA FRACTURE [None]
  - ROTATOR CUFF SYNDROME [None]
  - DEPRESSION [None]
  - BODY HEIGHT DECREASED [None]
  - INSOMNIA [None]
  - GASTROOESOPHAGEAL REFLUX DISEASE [None]
  - SCOLIOSIS [None]
  - FEMUR FRACTURE [None]
  - PELVIC FRACTURE [None]
  - HUMERUS FRACTURE [None]
  - CARDIOMEGALY [None]
  - TOOTH DISORDER [None]
  - SOMNAMBULISM [None]
  - SKELETAL INJURY [None]
  - CLAVICLE FRACTURE [None]
  - ANXIETY [None]
